FAERS Safety Report 26204115 (Version 1)
Quarter: 2025Q4

REPORT INFORMATION
  Report Type: Spontaneous
  Country: EU (occurrence: EU)
  Receive Date: 20251226
  Receipt Date: 20251226
  Transmission Date: 20260117
  Serious: Yes (Hospitalization, Other)
  Sender: ORGANON
  Company Number: EU-ZENTIVA-2025-ZT-054521

PATIENT
  Sex: Female

DRUGS (1)
  1. ALENDRONIC ACID [Suspect]
     Active Substance: ALENDRONIC ACID
     Dosage: UNK
     Route: 061

REACTIONS (7)
  - Dyspnoea [Unknown]
  - Dysphagia [Unknown]
  - Cough [Unknown]
  - Dysphonia [Not Recovered/Not Resolved]
  - Stridor [Unknown]
  - Speech disorder [Unknown]
  - Chemical burn of respiratory tract [Unknown]
